FAERS Safety Report 9051942 (Version 1)
Quarter: 2013Q1

REPORT INFORMATION
  Report Type: Spontaneous
  Country: US (occurrence: None)
  Receive Date: 20130130
  Receipt Date: 20130130
  Transmission Date: 20140127
  Serious: Yes (Hospitalization)
  Sender: FDA-Public Use
  Company Number: None

PATIENT
  Sex: Female
  Weight: 67.13 kg

DRUGS (1)
  1. CISPLATIN [Suspect]

REACTIONS (3)
  - Pyelonephritis [None]
  - Pseudomonas infection [None]
  - Enterobacter infection [None]
